FAERS Safety Report 5327633-2 (Version None)
Quarter: 2007Q2

REPORT INFORMATION
  Report Type: 
  Country: None (occurrence: None)
  Receive Date: 20070517
  Receipt Date: 20070515
  Transmission Date: 20071010
  Serious: Yes (Hospitalization, Other)
  Sender: FDA-Public Use
  Company Number: A0649705A

PATIENT
  Age: 55 Year
  Sex: Female

DRUGS (5)
  1. ADVAIR DISKUS 100/50 [Suspect]
     Indication: ASTHMA
     Route: 055
  2. THEOPHYLLINE [Concomitant]
  3. ALBUTEROL [Concomitant]
  4. ULTRAM [Concomitant]
  5. DIOVAN [Concomitant]

REACTIONS (1)
  - HEPATOMEGALY [None]
